FAERS Safety Report 6383463-4 (Version None)
Quarter: 2009Q3

REPORT INFORMATION
  Report Type: 
  Country: None (occurrence: None)
  Receive Date: 20090928
  Receipt Date: 20090915
  Transmission Date: 20100115
  Serious: Yes (Other)
  Sender: FDA-Public Use
  Company Number: ENT 2009-0095

PATIENT
  Age: 85 Year
  Sex: Female

DRUGS (9)
  1. COMTAN [Suspect]
     Indication: DRUG EFFECT DECREASED
     Dosage: 100MG/D ORAL, 200 MG ORAL
     Route: 048
     Dates: start: 20081113, end: 20090303
  2. COMTAN [Suspect]
     Indication: DRUG EFFECT DECREASED
     Dosage: 100MG/D ORAL, 200 MG ORAL
     Route: 048
     Dates: start: 20090304, end: 20090403
  3. CARBIDOPA AND LEVODOPA [Concomitant]
  4. SYMMETREL [Concomitant]
  5. SELEGILINE HCL [Concomitant]
  6. PRAMIPEXOLE DIHYDROCHLORIDE [Concomitant]
  7. DOPS [Concomitant]
  8. POLLAKISU [Concomitant]
  9. PLETAL [Concomitant]

REACTIONS (3)
  - DEPRESSED MOOD [None]
  - HALLUCINATION, VISUAL [None]
  - RENAL IMPAIRMENT [None]
